FAERS Safety Report 9007510 (Version 1)
Quarter: 2013Q1

REPORT INFORMATION
  Report Type: Spontaneous
  Country: US (occurrence: US)
  Receive Date: 20130111
  Receipt Date: 20130111
  Transmission Date: 20140127
  Serious: Yes (Other)
  Sender: FDA-Public Use
  Company Number: US-009507513-0907USA03807

PATIENT
  Age: 7 Year
  Sex: Male
  Weight: 31.75 kg

DRUGS (1)
  1. SINGULAIR [Suspect]
     Indication: MULTIPLE ALLERGIES
     Dosage: 5 MG, QD
     Route: 048
     Dates: start: 20080917, end: 20081030

REACTIONS (8)
  - Abnormal behaviour [Unknown]
  - Emotional disorder [Unknown]
  - Emotional distress [Unknown]
  - Mental disorder [Unknown]
  - Crying [Unknown]
  - Self esteem decreased [Unknown]
  - Agitation [Unknown]
  - Depressed mood [Unknown]
